FAERS Safety Report 15110614 (Version 1)
Quarter: 2018Q3

REPORT INFORMATION
  Report Type: Spontaneous
  Country: US (occurrence: US)
  Receive Date: 20180705
  Receipt Date: 20180705
  Transmission Date: 20181010
  Serious: Yes (Other)
  Sender: FDA-Public Use
  Company Number: US-SAOL THERAPEUTICS-2018SAO00874

PATIENT
  Age: 52 Year
  Sex: Female

DRUGS (5)
  1. DILAUDID [Concomitant]
     Active Substance: HYDROMORPHONE HYDROCHLORIDE
     Dosage: 0.5 MG, \DAY
     Route: 037
  2. COMPOUNDED BACLOFEN [Concomitant]
     Active Substance: BACLOFEN
     Indication: SPINAL PAIN
     Dosage: 67.40 ?G, \DAY
     Route: 037
  3. MORPHINE [Concomitant]
     Active Substance: MORPHINE
     Dosage: 5.461 MG, \DAY
     Route: 037
  4. MORPHINE [Concomitant]
     Active Substance: MORPHINE
     Dosage: 20 MG, 3X/DAY
     Route: 048
  5. LIORESAL [Suspect]
     Active Substance: BACLOFEN
     Indication: SPINAL PAIN
     Route: 037

REACTIONS (17)
  - Loss of consciousness [Unknown]
  - Hyperhidrosis [None]
  - Device damage [Recovered/Resolved]
  - Drug ineffective for unapproved indication [Unknown]
  - Pain in extremity [Unknown]
  - Vomiting [Unknown]
  - Dyspnoea [Unknown]
  - Asthenia [Unknown]
  - Drug withdrawal syndrome [Unknown]
  - Headache [Unknown]
  - Euphoric mood [Unknown]
  - Myocardial infarction [Unknown]
  - Back pain [Unknown]
  - Malaise [Unknown]
  - Drug dose omission [Unknown]
  - Mobility decreased [Unknown]
  - Device dislocation [Unknown]

NARRATIVE: CASE EVENT DATE: 2015
